FAERS Safety Report 14030684 (Version 1)
Quarter: 2017Q4

REPORT INFORMATION
  Report Type: Report from Study
  Country: None (occurrence: US)
  Receive Date: 20171002
  Receipt Date: 20171002
  Transmission Date: 20180321
  Serious: Yes (Other)
  Sender: FDA-Public Use
  Company Number: US-ABBVIE-17K-163-2025092-00

PATIENT
  Age: 73 Year
  Sex: Male
  Weight: 88.53 kg

DRUGS (1)
  1. HUMIRA [Suspect]
     Active Substance: ADALIMUMAB
     Indication: CROHN^S DISEASE
     Route: 058
     Dates: start: 2015

REACTIONS (5)
  - Rotator cuff syndrome [Recovering/Resolving]
  - Urinary retention [Recovered/Resolved]
  - Postoperative adhesion [Unknown]
  - Cartilage injury [Unknown]
  - Musculoskeletal pain [Recovered/Resolved]

NARRATIVE: CASE EVENT DATE: 201706
